FAERS Safety Report 12502630 (Version 1)
Quarter: 2016Q2

REPORT INFORMATION
  Report Type: Spontaneous
  Country: US (occurrence: US)
  Receive Date: 20160627
  Receipt Date: 20160627
  Transmission Date: 20160815
  Serious: Yes (Hospitalization, Other)
  Sender: FDA-Public Use
  Company Number: US-APOTEX-2016AP009350

PATIENT
  Age: 59 Year
  Sex: Male

DRUGS (1)
  1. ALLOPURINOL TABLETS USP [Suspect]
     Active Substance: ALLOPURINOL
     Indication: HYPERURICAEMIA
     Dosage: UNK, UNKNOWN
     Route: 065

REACTIONS (3)
  - Tubulointerstitial nephritis [Recovering/Resolving]
  - Vasculitis necrotising [Recovering/Resolving]
  - Drug reaction with eosinophilia and systemic symptoms [Recovering/Resolving]
